FAERS Safety Report 24117885 (Version 1)
Quarter: 2024Q3

REPORT INFORMATION
  Report Type: Spontaneous
  Country: FR (occurrence: FR)
  Receive Date: 20240722
  Receipt Date: 20240722
  Transmission Date: 20241017
  Serious: Yes (Other)
  Sender: AUROBINDO
  Company Number: FR-AFSSAPS-CN2024000687

PATIENT
  Age: 86 Year
  Sex: Female
  Weight: 40 kg

DRUGS (2)
  1. DULOXETINE [Suspect]
     Active Substance: DULOXETINE
     Indication: Depression
     Dosage: 30 MILLIGRAM, ONCE A DAY
     Route: 048
     Dates: start: 20240705
  2. CITALOPRAM [Concomitant]
     Active Substance: CITALOPRAM\CITALOPRAM HYDROBROMIDE
     Indication: Depression
     Dosage: 10 MILLIGRAM, ONCE A DAY (USUAL DOSAGE OF 20MG/DAY REDUCED TO 10MG/DAY FROM 05/07 TO 08/07)
     Route: 048
     Dates: start: 20240705, end: 20240708

REACTIONS (1)
  - Delusional disorder, persecutory type [Not Recovered/Not Resolved]

NARRATIVE: CASE EVENT DATE: 20240708
